FAERS Safety Report 4564318-4 (Version None)
Quarter: 2005Q1

REPORT INFORMATION
  Report Type: 
  Country: None (occurrence: None)
  Receive Date: 20050126
  Receipt Date: 20050107
  Transmission Date: 20050727
  Serious: Yes (Death, Hospitalization)
  Sender: FDA-Public Use
  Company Number: FR_050105569

PATIENT
  Age: 75 Year
  Sex: Male

DRUGS (5)
  1. PROZAC [Suspect]
     Dosage: 20 MG/1 DAY
  2. CLINOMEL [Concomitant]
  3. PREVISCAN (FLUINDIONE) [Concomitant]
  4. MOPRAL (OMEPRAZOLE RATIOPHARM) [Concomitant]
  5. CORDARONE [Concomitant]

REACTIONS (2)
  - HEPATITIS FULMINANT [None]
  - MULTI-ORGAN FAILURE [None]
